FAERS Safety Report 8820996 (Version 2)
Quarter: 2015Q3

REPORT INFORMATION
  Report Type: Report from Study
  Country: US (occurrence: US)
  Receive Date: 20121002
  Receipt Date: 20150730
  Transmission Date: 20151125
  Serious: Yes (Death)
  Sender: FDA-Public Use
  Company Number: US-ROCHE-1136093

PATIENT
  Age: 82 Year
  Sex: Male

DRUGS (1)
  1. RITUXAN [Suspect]
     Active Substance: RITUXIMAB
     Indication: RHEUMATOID ARTHRITIS
     Route: 042
     Dates: start: 20071119, end: 200812

REACTIONS (3)
  - Subdural haematoma [Fatal]
  - Hip surgery [Fatal]
  - Pneumonia [Fatal]

NARRATIVE: CASE EVENT DATE: 200901
